FAERS Safety Report 9026361 (Version 1)
Quarter: 2013Q1

REPORT INFORMATION
  Report Type: Spontaneous
  Country: ZA (occurrence: None)
  Receive Date: 20130104
  Receipt Date: 20130104
  Transmission Date: 20140127
  Serious: Yes (Other)
  Sender: FDA-Public Use
  Company Number: B0856195A

PATIENT
  Age: 5 Year
  Sex: Male

DRUGS (6)
  1. LAMIVUDINE [Suspect]
     Indication: HIV INFECTION
  2. TRETINOIN [Suspect]
     Indication: ACUTE MYELOID LEUKAEMIA
  3. STAVUDINE [Suspect]
     Indication: HIV INFECTION
  4. EFAVIRENZ [Suspect]
     Indication: HIV INFECTION
  5. ANTI-TB MEDICATION (FORMULATION UNKNOWN) (ANTI-TB MEDICATION) [Suspect]
     Indication: TUBERCULOSIS
  6. CANCER CHEMOTHERAPY [Suspect]

REACTIONS (3)
  - Sepsis [None]
  - Hypersensitivity [None]
  - Drug interaction [None]
